FAERS Safety Report 9280904 (Version 1)
Quarter: 2013Q2

REPORT INFORMATION
  Report Type: Spontaneous
  Country: DK (occurrence: DK)
  Receive Date: 20130509
  Receipt Date: 20130509
  Transmission Date: 20140414
  Serious: Yes (Other)
  Sender: FDA-Public Use
  Company Number: DK-BRISTOL-MYERS SQUIBB COMPANY-18853481

PATIENT
  Age: 49 Year
  Sex: Male
  Weight: 67 kg

DRUGS (1)
  1. ABILIFY TABS 10 MG [Suspect]
     Indication: SCHIZOPHRENIA
     Dosage: STYRKE: 10 MG
     Dates: start: 20051010

REACTIONS (10)
  - Loss of consciousness [Unknown]
  - Fatigue [Unknown]
  - Weight decreased [Unknown]
  - Erectile dysfunction [Unknown]
  - Depression [Unknown]
  - Restlessness [Unknown]
  - Nervousness [Unknown]
  - Anxiety [Unknown]
  - Tremor [Unknown]
  - Dyskinesia [Unknown]
